FAERS Safety Report 7609232-2 (Version None)
Quarter: 2011Q3

REPORT INFORMATION
  Report Type: 
  Country: None (occurrence: None)
  Receive Date: 20110714
  Receipt Date: 20110706
  Transmission Date: 20111222
  Serious: Yes (Other)
  Sender: FDA-Public Use
  Company Number: TW-MERCK-1107USA01204

PATIENT
  Age: 15 Week

DRUGS (2)
  1. DECADRON [Suspect]
     Indication: CHRONIC RESPIRATORY DISEASE
     Route: 048
  2. FUROSEMIDE [Suspect]
     Indication: CHRONIC RESPIRATORY DISEASE
     Route: 065

REACTIONS (1)
  - NEPHROCALCINOSIS [None]
